FAERS Safety Report 7322089-2 (Version None)
Quarter: 2011Q1

REPORT INFORMATION
  Report Type: 
  Country: None (occurrence: None)
  Receive Date: 20110228
  Receipt Date: 20110217
  Transmission Date: 20110831
  Serious: Yes (Other)
  Sender: FDA-Public Use
  Company Number: GB-BAXTER-2011BH004111

PATIENT
  Age: 82 Year
  Sex: Male

DRUGS (1)
  1. DIANEAL [Suspect]
     Indication: PERITONEAL DIALYSIS
     Route: 065

REACTIONS (3)
  - FLUID RETENTION [None]
  - BLOOD PRESSURE INCREASED [None]
  - WEIGHT INCREASED [None]
